FAERS Safety Report 6183092-1 (Version None)
Quarter: 2009Q2

REPORT INFORMATION
  Report Type: 
  Country: None (occurrence: None)
  Receive Date: 20090507
  Receipt Date: 20090428
  Transmission Date: 20091009
  Serious: Yes (Disabling)
  Sender: FDA-Public Use
  Company Number: GB-ASTRAZENECA-2009GB01042

PATIENT
  Age: 64 Year
  Sex: Female
  Weight: 55 kg

DRUGS (8)
  1. QUETIAPINE [Suspect]
     Indication: DEPRESSION
     Route: 048
     Dates: end: 20080331
  2. ASPIRIN [Concomitant]
  3. GABAPENTIN [Concomitant]
  4. GLUCOPHAGE [Concomitant]
  5. MIRTAZAPINE [Concomitant]
  6. PERINDOPRIL [Concomitant]
  7. ROSUVASTATIN CALCIUM [Concomitant]
     Route: 048
  8. ZIMOVANE [Concomitant]

REACTIONS (2)
  - PAIN [None]
  - PAIN IN EXTREMITY [None]
